FAERS Safety Report 9607740 (Version 1)
Quarter: 2013Q4

REPORT INFORMATION
  Report Type: Spontaneous
  Country: JP (occurrence: JP)
  Receive Date: 20131009
  Receipt Date: 20131009
  Transmission Date: 20140711
  Serious: Yes (Other)
  Sender: FDA-Public Use
  Company Number: JP-ASTELLAS-2013JP010441

PATIENT
  Age: 55 Year
  Sex: Male

DRUGS (6)
  1. PROGRAF [Suspect]
     Indication: PROPHYLAXIS AGAINST GRAFT VERSUS HOST DISEASE
     Route: 065
  2. FLUDARABINE [Concomitant]
     Indication: PREMEDICATION
     Dosage: 180 MG/M2, UNKNOWN/D
     Route: 065
  3. BUSULFAN [Concomitant]
     Indication: PREMEDICATION
     Dosage: 12.8 MG/KG, UNKNOWN/D
     Route: 065
  4. METHOTREXATE [Concomitant]
     Indication: PROPHYLAXIS AGAINST GRAFT VERSUS HOST DISEASE
     Route: 065
  5. URSODEOXYCHOLIC ACID [Concomitant]
     Indication: VENOOCCLUSIVE LIVER DISEASE
     Route: 065
  6. FUROSEMIDE [Concomitant]
     Route: 065

REACTIONS (2)
  - Drug ineffective [Unknown]
  - Acute graft versus host disease in skin [Recovered/Resolved]
